FAERS Safety Report 7145949-4 (Version None)
Quarter: 2010Q4

REPORT INFORMATION
  Report Type: 
  Country: None (occurrence: None)
  Receive Date: 20101208
  Receipt Date: 20101125
  Transmission Date: 20110411
  Serious: Yes (Hospitalization)
  Sender: FDA-Public Use
  Company Number: ES-ELI_LILLY_AND_COMPANY-ES201011006773

PATIENT
  Sex: Female
  Weight: 59 kg

DRUGS (6)
  1. FORTEO [Suspect]
     Indication: OSTEOPOROSIS
     Dosage: 20 UG, DAILY (1/D)
     Route: 058
     Dates: start: 20090201, end: 20101105
  2. INDAPAMIDA [Concomitant]
     Indication: HYPERTENSION
     Dosage: 2.5 MG, DAILY (1/D)
     Route: 048
  3. SINVASTATINA [Concomitant]
     Indication: HYPERLIPIDAEMIA
     Dosage: 20 MG, DAILY (1/D)
     Route: 048
  4. OMEPRAZOLE [Concomitant]
     Indication: PROPHYLAXIS
     Dosage: 20 MG, AS NEEDED
     Route: 048
  5. NOLOTIL [Concomitant]
     Indication: PAIN
     Dosage: UNK, EVERY 6 HRS
     Route: 048
     Dates: start: 20101101
  6. COLLYRIUM [Concomitant]
     Indication: DRY EYE
     Dosage: UNK, 2/D
     Route: 061

REACTIONS (1)
  - HIP FRACTURE [None]
